FAERS Safety Report 6735213-7 (Version None)
Quarter: 2010Q2

REPORT INFORMATION
  Report Type: 
  Country: None (occurrence: None)
  Receive Date: 20100521
  Receipt Date: 20100420
  Transmission Date: 20101027
  Serious: Yes (Disabling)
  Sender: FDA-Public Use
  Company Number: FR-ASTRAZENECA-2010SE09643

PATIENT
  Age: 493 Month
  Sex: Female

DRUGS (2)
  1. TAMOXIFENE GENERIQUE [Suspect]
     Indication: BREAST CANCER
     Dates: start: 20090601, end: 20091015
  2. TAMOXIFENE GENERIQUE [Suspect]
     Dates: start: 20100201, end: 20100301

REACTIONS (2)
  - MYALGIA [None]
  - UTERINE CYST [None]
